FAERS Safety Report 9867414 (Version 2)
Quarter: 2014Q1

REPORT INFORMATION
  Report Type: Spontaneous
  Country: US (occurrence: US)
  Receive Date: 20140204
  Receipt Date: 20140204
  Transmission Date: 20141002
  Serious: Yes (Other)
  Sender: FDA-Public Use
  Company Number: US-GE HEALTHCARE MEDICAL DIAGNOSTICS-OSCN-PR-0806S-0338

PATIENT
  Sex: Female

DRUGS (85)
  1. OMNISCAN [Suspect]
     Indication: PRODUCT USED FOR UNKNOWN INDICATION
  2. GADOLINIUM (UNSPECIFIED) [Suspect]
     Indication: PRODUCT USED FOR UNKNOWN INDICATION
     Dates: start: 19970519, end: 19970519
  3. GADOLINIUM (UNSPECIFIED) [Suspect]
     Indication: PRODUCT USED FOR UNKNOWN INDICATION
     Dates: start: 19970530, end: 19970530
  4. GADOLINIUM (UNSPECIFIED) [Suspect]
     Indication: PRODUCT USED FOR UNKNOWN INDICATION
     Dates: start: 19970602, end: 19970602
  5. GADOLINIUM (UNSPECIFIED) [Suspect]
     Indication: PRODUCT USED FOR UNKNOWN INDICATION
     Dates: start: 19970818, end: 19970818
  6. GADOLINIUM (UNSPECIFIED) [Suspect]
     Indication: PRODUCT USED FOR UNKNOWN INDICATION
     Dates: start: 19980107, end: 19980107
  7. GADOLINIUM (UNSPECIFIED) [Suspect]
     Indication: PRODUCT USED FOR UNKNOWN INDICATION
     Dates: start: 19981201, end: 19981201
  8. GADOLINIUM (UNSPECIFIED) [Suspect]
     Indication: PRODUCT USED FOR UNKNOWN INDICATION
     Dates: start: 20000414, end: 20000414
  9. GADOLINIUM (UNSPECIFIED) [Suspect]
     Indication: PRODUCT USED FOR UNKNOWN INDICATION
     Dates: start: 20031014, end: 20031014
  10. GADOLINIUM (UNSPECIFIED) [Suspect]
     Indication: PRODUCT USED FOR UNKNOWN INDICATION
     Dates: start: 20040106, end: 20040106
  11. MAGNEVIST [Suspect]
     Indication: RENAL CYST
     Dates: start: 20010213, end: 20010213
  12. MAGNEVIST [Suspect]
     Indication: RENAL CYST
     Dates: start: 20010814, end: 20010814
  13. MAGNEVIST [Suspect]
     Indication: PRODUCT USED FOR UNKNOWN INDICATION
     Dates: start: 20010816, end: 20010816
  14. MAGNEVIST [Suspect]
     Indication: RENAL MASS
     Dates: start: 20020305, end: 20020305
  15. MAGNEVIST [Suspect]
     Indication: HAEMANGIOBLASTOMA
     Dates: start: 20020307, end: 20020307
  16. MAGNEVIST [Suspect]
     Indication: RENAL CANCER RECURRENT
     Dates: start: 20020530, end: 20020530
  17. MAGNEVIST [Suspect]
     Indication: RENAL CYST
     Dates: start: 20020903, end: 20020903
  18. MAGNEVIST [Suspect]
     Indication: RENAL CYST
     Dates: start: 20020905, end: 20020905
  19. MAGNEVIST [Suspect]
     Indication: PRODUCT USED FOR UNKNOWN INDICATION
     Dates: start: 20030114, end: 20030114
  20. MAGNEVIST [Suspect]
     Indication: PRODUCT USED FOR UNKNOWN INDICATION
     Dates: start: 20030415, end: 20030415
  21. MAGNEVIST [Suspect]
     Indication: NEOPLASM
     Dates: start: 20030417, end: 20030417
  22. MAGNEVIST [Suspect]
     Indication: PRODUCT USED FOR UNKNOWN INDICATION
     Dates: start: 20030417, end: 20030417
  23. MAGNEVIST [Suspect]
     Indication: PRODUCT USED FOR UNKNOWN INDICATION
     Dates: start: 20030708, end: 20030708
  24. MAGNEVIST [Suspect]
     Indication: VON HIPPEL-LINDAU DISEASE
     Dates: start: 20030710, end: 20030710
  25. MAGNEVIST [Suspect]
     Indication: PRODUCT USED FOR UNKNOWN INDICATION
     Dates: start: 20040106, end: 20040106
  26. MAGNEVIST [Suspect]
     Indication: PRODUCT USED FOR UNKNOWN INDICATION
     Dates: start: 20040108, end: 20040108
  27. MAGNEVIST [Suspect]
     Indication: PRODUCT USED FOR UNKNOWN INDICATION
     Dates: start: 20040608, end: 20040608
  28. MAGNEVIST [Suspect]
     Indication: HAEMANGIOBLASTOMA
     Dates: start: 20040610, end: 20040610
  29. MAGNEVIST [Suspect]
     Indication: PRODUCT USED FOR UNKNOWN INDICATION
     Dates: start: 20040610, end: 20040610
  30. MAGNEVIST [Suspect]
     Indication: PRODUCT USED FOR UNKNOWN INDICATION
     Dates: start: 20041214, end: 20041214
  31. MAGNEVIST [Suspect]
     Indication: PRODUCT USED FOR UNKNOWN INDICATION
     Dates: start: 20050614, end: 20050614
  32. MAGNEVIST [Suspect]
     Indication: PRODUCT USED FOR UNKNOWN INDICATION
     Dates: start: 20050614, end: 20050614
  33. MAGNEVIST [Suspect]
     Indication: PRODUCT USED FOR UNKNOWN INDICATION
     Dates: start: 20050615, end: 20050615
  34. MAGNEVIST [Suspect]
     Indication: PANCREATIC MASS
     Dates: start: 20060130, end: 20060130
  35. MAGNEVIST [Suspect]
     Indication: HAEMANGIOBLASTOMA
     Dates: start: 20060201, end: 20060201
  36. MAGNEVIST [Suspect]
     Indication: HAEMANGIOBLASTOMA
     Dates: start: 20060201, end: 20060201
  37. MAGNEVIST [Suspect]
     Indication: PRODUCT USED FOR UNKNOWN INDICATION
     Dates: start: 20060821, end: 20060821
  38. MAGNEVIST [Suspect]
     Indication: PRODUCT USED FOR UNKNOWN INDICATION
     Dates: start: 20070215, end: 20070215
  39. MAGNEVIST [Suspect]
     Indication: PRODUCT USED FOR UNKNOWN INDICATION
  40. OPTIMARK [Suspect]
     Indication: PRODUCT USED FOR UNKNOWN INDICATION
  41. MULTIHANCE [Suspect]
     Indication: PRODUCT USED FOR UNKNOWN INDICATION
  42. PROHANCE [Suspect]
     Indication: PRODUCT USED FOR UNKNOWN INDICATION
  43. PROGRAF [Concomitant]
  44. CELLCEPT [Concomitant]
  45. PREDNISONE [Concomitant]
  46. VALCYTE [Concomitant]
  47. BACTRIM [Concomitant]
  48. PRILOSEC [Concomitant]
  49. SYNTHROID [Concomitant]
  50. ZOLOFT [Concomitant]
  51. SENSIPAR [Concomitant]
  52. GABAPENTIN [Concomitant]
  53. ASPIRIN [Concomitant]
  54. DIAZEPAM [Concomitant]
  55. MECLIZINE [Concomitant]
  56. TYLENOL [Concomitant]
  57. TREMADOL [Concomitant]
  58. ZANTAC [Concomitant]
  59. DOCUSATE SODIUM [Concomitant]
  60. EPOGEN [Concomitant]
  61. IRON [Concomitant]
  62. RENAL VITAMINS [Concomitant]
  63. HYDROCODONE [Concomitant]
  64. CATAPRES-TTS [Concomitant]
  65. LIPITOR [Concomitant]
  66. METOPROLOL [Concomitant]
  67. NORVASC [Concomitant]
  68. CARDURA [Concomitant]
  69. LASIX [Concomitant]
  70. VITAMIN E [Concomitant]
  71. LIPOFLAVONOID [Concomitant]
  72. ACCUPRIL [Concomitant]
  73. DARVOCET-N [Concomitant]
  74. FOSAMAX [Concomitant]
  75. THALLIUM [Concomitant]
  76. BICITRA [Concomitant]
  77. VITAMIN C [Concomitant]
  78. PERCOCET [Concomitant]
  79. LORAZEPAM [Concomitant]
  80. SENOKOT [Concomitant]
  81. HORMONES [Concomitant]
  82. XANAX [Concomitant]
  83. NEPHRO-VITE [Concomitant]
  84. RENAGEL [Concomitant]
  85. PROMETHAZINE [Concomitant]

REACTIONS (1)
  - Nephrogenic systemic fibrosis [Not Recovered/Not Resolved]
